FAERS Safety Report 7743073-0 (Version None)
Quarter: 2011Q3

REPORT INFORMATION
  Report Type: 
  Country: None (occurrence: None)
  Receive Date: 20110912
  Receipt Date: 20110907
  Transmission Date: 20111222
  Serious: Yes (Other)
  Sender: FDA-Public Use
  Company Number: US-B.I. PHARMACEUTICALS,INC./RIDGEFIELD-2011-BP-21634BP

PATIENT
  Sex: Female

DRUGS (15)
  1. METFORMIN HCL [Concomitant]
     Indication: DIABETES MELLITUS
  2. NATEGLINIDE [Concomitant]
     Indication: DIABETES MELLITUS
  3. PROMETHAZINE [Concomitant]
     Indication: PROPHYLAXIS OF NAUSEA AND VOMITING
  4. LORAZEPAM [Concomitant]
     Indication: NERVOUSNESS
  5. MUCINEX [Concomitant]
     Indication: NASAL CONGESTION
  6. SPIRIVA [Suspect]
     Indication: CHRONIC OBSTRUCTIVE PULMONARY DISEASE
     Dosage: 18 MCG
     Route: 055
     Dates: start: 20100101
  7. AMLODIPINE [Concomitant]
  8. OXYCODONE HCL [Concomitant]
     Indication: PAIN
  9. PROMETHAZINE [Concomitant]
     Indication: NAUSEA
  10. IPRATROPIUM BROMIDE AND ALBUTEROL [Concomitant]
     Indication: CHRONIC OBSTRUCTIVE PULMONARY DISEASE
  11. ONDANSETRON [Concomitant]
     Indication: NAUSEA
  12. FOLIC ACID [Concomitant]
     Indication: SUPPLEMENTATION THERAPY
  13. SYMBICORT [Concomitant]
     Indication: ASTHMA
  14. ONDANSETRON [Concomitant]
     Indication: PROPHYLAXIS OF NAUSEA AND VOMITING
  15. LANTUS [Concomitant]
     Indication: DIABETES MELLITUS

REACTIONS (2)
  - LUNG NEOPLASM MALIGNANT [None]
  - DYSPNOEA [None]
